FAERS Safety Report 6320578-0 (Version None)
Quarter: 2009Q3

REPORT INFORMATION
  Report Type: 
  Country: None (occurrence: None)
  Receive Date: 20090822
  Receipt Date: 20081119
  Transmission Date: 20100115
  Serious: No
  Sender: FDA-Public Use
  Company Number: US-ABBOTT-08P-163-0488541-00

PATIENT
  Sex: Male
  Weight: 90.8 kg

DRUGS (22)
  1. NIASPAN [Suspect]
     Indication: BLOOD CHOLESTEROL INCREASED
     Dates: start: 20081111, end: 20081117
  2. NIASPAN [Suspect]
     Indication: BLOOD TRIGLYCERIDES INCREASED
     Dates: start: 20081118
  3. ASPIRIN [Concomitant]
     Indication: PROPHYLAXIS
     Dates: start: 20081111
  4. ASPIRIN [Concomitant]
     Indication: FLUSHING
  5. MONTELUKAST SODIUM [Concomitant]
     Indication: ASTHMA
  6. PIOGLITAZONE [Concomitant]
     Indication: DIABETES MELLITUS
  7. PIOGLITAZONE [Concomitant]
     Indication: BLOOD CHOLESTEROL
  8. CLOPIDOGREL [Concomitant]
     Indication: MYOCARDIAL INFARCTION
  9. CLOPIDOGREL [Concomitant]
     Indication: ANTICOAGULANT THERAPY
  10. DIGOXIN [Concomitant]
     Indication: ATRIAL FLUTTER
  11. ATORVASTATIN CALCIUM [Concomitant]
     Indication: BLOOD CHOLESTEROL
  12. EZETIMIBE [Concomitant]
     Indication: BLOOD CHOLESTEROL
  13. METFORMIN [Concomitant]
     Indication: DIABETES MELLITUS
  14. GEMFRIBOZIL [Concomitant]
     Indication: DIABETES MELLITUS
  15. GEMFRIBOZIL [Concomitant]
     Indication: BLOOD CHOLESTEROL
  16. SERETIDE [Concomitant]
     Indication: ASTHMA
     Dosage: 50/250 INHALER, 1-2 TIMES A DAY
  17. LISINOPRIL [Concomitant]
     Indication: CARDIAC DISORDER
  18. MORNIFLUMATE [Concomitant]
     Indication: URINARY TRACT DISORDER
     Dosage: .4 MG, 1-2 DAILY
  19. OMEPRAZOLE MAGNESIUM [Concomitant]
     Indication: GASTROOESOPHAGEAL REFLUX DISEASE
     Dosage: 1-2 TIMES A DAY
  20. RINTINBINE [Concomitant]
     Indication: GASTROOESOPHAGEAL REFLUX DISEASE
     Dosage: 1-2 TIMES A DAY
  21. FUROSEMIDE [Concomitant]
     Indication: FLUID RETENTION
     Dosage: 1-2 TIMES A DAY
  22. TRAMADOL [Concomitant]
     Indication: PAIN
     Dosage: 2 TABS UP TO 4 TIMES A DAY AS NEEDED
     Dates: start: 20081001

REACTIONS (3)
  - CONSTIPATION [None]
  - DEHYDRATION [None]
  - DIZZINESS [None]
